FAERS Safety Report 21449061 (Version 1)
Quarter: 2022Q4

REPORT INFORMATION
  Report Type: Report from Study
  Country: CN (occurrence: CN)
  Receive Date: 20221013
  Receipt Date: 20221013
  Transmission Date: 20230113
  Serious: Yes (Other)
  Sender: FDA-Public Use
  Company Number: CN-BRISTOL-MYERS SQUIBB COMPANY-2022-118146

PATIENT
  Age: 51 Year
  Sex: Male

DRUGS (1)
  1. OPDIVO [Suspect]
     Active Substance: NIVOLUMAB
     Indication: Lung neoplasm malignant
     Route: 041
     Dates: start: 20220702

REACTIONS (8)
  - Asthma [Unknown]
  - Discomfort [Unknown]
  - Cachexia [Unknown]
  - Mouth ulceration [Unknown]
  - Decreased appetite [Unknown]
  - Poor quality sleep [Unknown]
  - Cough [Unknown]
  - Off label use [Unknown]
